FAERS Safety Report 11779127 (Version 1)
Quarter: 2015Q4

REPORT INFORMATION
  Report Type: Report from Study
  Country: SE (occurrence: SE)
  Receive Date: 20151125
  Receipt Date: 20151125
  Transmission Date: 20160304
  Serious: Yes (Disabling, Other)
  Sender: FDA-Public Use
  Company Number: SE-ABBVIE-15P-150-1506822-00

PATIENT
  Age: 69 Year
  Sex: Male

DRUGS (1)
  1. DUODOPA [Suspect]
     Active Substance: CARBIDOPA\LEVODOPA
     Indication: PARKINSON^S DISEASE
     Dosage: MD: 3.0 ML, CD: 5.0 ML/H, ED: 1.0 ML
     Route: 065
     Dates: start: 20080101

REACTIONS (4)
  - Bladder injury [Recovered/Resolved with Sequelae]
  - Prostate cancer [Unknown]
  - Colon injury [Recovered/Resolved with Sequelae]
  - Orthostatic hypotension [Not Recovered/Not Resolved]

NARRATIVE: CASE EVENT DATE: 2011
